FAERS Safety Report 10802417 (Version 13)
Quarter: 2016Q4

REPORT INFORMATION
  Report Type: Spontaneous
  Country: DE (occurrence: DE)
  Receive Date: 20150217
  Receipt Date: 20161010
  Transmission Date: 20170206
  Serious: Yes (Hospitalization)
  Sender: FDA-Public Use
  Company Number: DE-ORION CORPORATION ORION PHARMA-ENTC2015-0050

PATIENT
  Age: 71 Year
  Sex: Male
  Weight: 81 kg

DRUGS (13)
  1. RANIBIZUMAB [Suspect]
     Active Substance: RANIBIZUMAB
     Indication: AGE-RELATED MACULAR DEGENERATION
     Dosage: WHEN NECESSARY
     Route: 031
     Dates: start: 20141028
  2. RANIBIZUMAB [Suspect]
     Active Substance: RANIBIZUMAB
     Dosage: WHEN NECESSARY
     Route: 031
     Dates: start: 20150324
  3. CONCOR COR [Concomitant]
     Active Substance: BISOPROLOL FUMARATE
     Route: 065
  4. ASS RATIOPHARM [Concomitant]
     Active Substance: ASPIRIN
     Route: 065
  5. PRAMIPEXOLE HEUMANN [Suspect]
     Active Substance: PRAMIPEXOLE DIHYDROCHLORIDE
     Indication: PARKINSON^S DISEASE
     Dosage: STRENGTH: 918 MG+ 0.35 MG
     Route: 065
  6. STALEVO [Suspect]
     Active Substance: CARBIDOPA\ENTACAPONE\LEVODOPA
     Indication: PARKINSON^S DISEASE
     Dosage: STRENGTH: 100/25/200 MG
     Route: 065
  7. MADOPAR [Suspect]
     Active Substance: BENSERAZIDE HYDROCHLORIDE\LEVODOPA
     Indication: PARKINSON^S DISEASE
     Dosage: STRENGTH: 100/25 MG
     Route: 065
  8. LEVODOP [Suspect]
     Active Substance: LEVODOPA
     Indication: PARKINSON^S DISEASE
     Dosage: STRENGTH: 100/27 MG
     Route: 065
  9. PRAMIPEXOLE HEUMANN [Suspect]
     Active Substance: PRAMIPEXOLE DIHYDROCHLORIDE
     Dosage: STRENGTH: 918 MG + 0.35 MG
     Route: 048
     Dates: start: 20150505
  10. TIMOLOL. [Concomitant]
     Active Substance: TIMOLOL
     Dosage: STRENGTH: 0.5 MG
     Route: 065
  11. RANIBIZUMAB [Suspect]
     Active Substance: RANIBIZUMAB
     Dosage: WHEN NECESSARY
     Route: 031
     Dates: start: 20141125, end: 20141125
  12. PRAMIPEXOLE HEUMANN [Suspect]
     Active Substance: PRAMIPEXOLE DIHYDROCHLORIDE
     Dosage: STRENGTH: 918 MG + 0.35 MG
     Route: 065
     Dates: start: 20150209
  13. RANIBIZUMAB [Suspect]
     Active Substance: RANIBIZUMAB
     Dosage: WHEN NECESSARY
     Route: 031
     Dates: start: 20150217

REACTIONS (5)
  - Nausea [Not Recovered/Not Resolved]
  - Parkinson^s disease [Not Recovered/Not Resolved]
  - Hypertonia [Recovering/Resolving]
  - Hyperkinesia [Recovering/Resolving]
  - Peripheral sensory neuropathy [Not Recovered/Not Resolved]

NARRATIVE: CASE EVENT DATE: 20141229
